FAERS Safety Report 6030948-6 (Version None)
Quarter: 2009Q1

REPORT INFORMATION
  Report Type: 
  Country: None (occurrence: None)
  Receive Date: 20090106
  Receipt Date: 20081224
  Transmission Date: 20090719
  Serious: Yes (Hospitalization)
  Sender: FDA-Public Use
  Company Number: 2008AP003591

PATIENT
  Age: 67 Year
  Sex: Male

DRUGS (5)
  1. PAROXETINE HCL [Suspect]
  2. BENZTROPINE MESYLATE [Suspect]
  3. AMITRIPTYLINE HYDROCHLORIDE [Suspect]
  4. VERAPAMIL [Suspect]
  5. FERROUS GLUCONATE (FERROUS GLUCONATE) [Suspect]

REACTIONS (5)
  - CONSTIPATION [None]
  - DEPRESSION [None]
  - FAECALOMA [None]
  - INTESTINAL PERFORATION [None]
  - MEMORY IMPAIRMENT [None]
